FAERS Safety Report 6564000-8 (Version None)
Quarter: 2010Q1

REPORT INFORMATION
  Report Type: 
  Country: None (occurrence: None)
  Receive Date: 20100131
  Receipt Date: 20100122
  Transmission Date: 20100710
  Serious: Yes (Other)
  Sender: FDA-Public Use
  Company Number: DE-JNJFOC-20091105549

PATIENT
  Sex: Male
  Weight: 98 kg

DRUGS (1)
  1. RISPERDAL [Suspect]
     Indication: SCHIZOPHRENIA, PARANOID TYPE
     Route: 048
     Dates: start: 20091114, end: 20091126

REACTIONS (2)
  - BLOOD CORTISOL DECREASED [None]
  - PROLACTINOMA [None]
